FAERS Safety Report 18930192 (Version 7)
Quarter: 2021Q4

REPORT INFORMATION
  Report Type: Spontaneous
  Country: US (occurrence: US)
  Receive Date: 20210223
  Receipt Date: 20211214
  Transmission Date: 20220303
  Serious: Yes (Disabling)
  Sender: FDA-Public Use
  Company Number: US-AMERICAN REGENT INC-2021000436

PATIENT
  Age: 56 Year
  Sex: Female
  Weight: 58.8 kg

DRUGS (52)
  1. INJECTAFER [Suspect]
     Active Substance: FERRIC CARBOXYMALTOSE
     Indication: Iron deficiency anaemia
     Dosage: 750 MILLIGRAM IN 230 ML OF SODIUM CHLORIDE
     Route: 042
     Dates: start: 20160218, end: 20160218
  2. INJECTAFER [Suspect]
     Active Substance: FERRIC CARBOXYMALTOSE
     Dosage: 750 MILLIGRAM IN 250 ML OF 0.9% SODIUM CHLORIDE
     Route: 042
     Dates: start: 20160303, end: 20160303
  3. INJECTAFER [Suspect]
     Active Substance: FERRIC CARBOXYMALTOSE
     Dosage: 750 MILLIGRAM IN 230 ML OF SODIUM CHLORIDE
     Route: 042
     Dates: start: 20160414, end: 20160414
  4. INJECTAFER [Suspect]
     Active Substance: FERRIC CARBOXYMALTOSE
     Dosage: 750 MILLIGRAM IN 230 ML OF SODIUM CHLORIDE
     Route: 042
     Dates: start: 20160628, end: 20160628
  5. INJECTAFER [Suspect]
     Active Substance: FERRIC CARBOXYMALTOSE
     Dosage: 750 MILLIGRAM 230 ML OF SODIUM CHLORIDE
     Route: 042
     Dates: start: 20160811, end: 20160811
  6. INJECTAFER [Suspect]
     Active Substance: FERRIC CARBOXYMALTOSE
     Dosage: 750 MILLIGRAM IN 230 ML OF SODIUM CHLORIDE
     Route: 042
     Dates: start: 20160922, end: 20160922
  7. INJECTAFER [Suspect]
     Active Substance: FERRIC CARBOXYMALTOSE
     Dosage: 750 MILLIGRAM IN 250 ML OF 0.9% SODIUM CHLORIDE
     Route: 042
     Dates: start: 20161014, end: 20161014
  8. INJECTAFER [Suspect]
     Active Substance: FERRIC CARBOXYMALTOSE
     Dosage: 750 MILLIGRAM IN 250 ML OF 0.9% SODIUM CHLORIDE
     Route: 042
     Dates: start: 20161028, end: 20161028
  9. INJECTAFER [Suspect]
     Active Substance: FERRIC CARBOXYMALTOSE
     Dosage: 750 MILLIGRAM IN 250 ML OF 0.9% SODIUM CHLORIDE
     Route: 042
     Dates: start: 20161209, end: 20161209
  10. INJECTAFER [Suspect]
     Active Substance: FERRIC CARBOXYMALTOSE
     Dosage: 750 MILLIGRAM IN 230 ML OF SODIUM CHLORIDE
     Route: 042
     Dates: start: 20170120, end: 20170120
  11. INJECTAFER [Suspect]
     Active Substance: FERRIC CARBOXYMALTOSE
     Dosage: 750 MILLIGRAM IN 230 ML OF SODIUM CHLORIDE
     Route: 042
     Dates: start: 20170214, end: 20170214
  12. INJECTAFER [Suspect]
     Active Substance: FERRIC CARBOXYMALTOSE
     Dosage: 750 MILLIGRAM IN 230 ML OF 0.9% SODIUM CHLORIDE
     Route: 042
     Dates: start: 20170314, end: 20170314
  13. INJECTAFER [Suspect]
     Active Substance: FERRIC CARBOXYMALTOSE
     Dosage: 750 MILLIGRAM IN 230 ML 0.9% SODIUM CHLORIDE
     Route: 042
     Dates: start: 20170418, end: 20170418
  14. INJECTAFER [Suspect]
     Active Substance: FERRIC CARBOXYMALTOSE
     Dosage: 750 MILLIGRAM IN 250 ML 0.9% NORMAL SALINE
     Route: 042
     Dates: start: 20170606, end: 20170606
  15. INJECTAFER [Suspect]
     Active Substance: FERRIC CARBOXYMALTOSE
     Dosage: 750 MILLIGRAM IN 250 ML 0.9% NORMAL SALINE
     Dates: start: 20170718, end: 20170718
  16. INJECTAFER [Suspect]
     Active Substance: FERRIC CARBOXYMALTOSE
     Dosage: 750 MILLIGRAM IN 250 ML 0.9% NORMAL SALINE
     Route: 042
     Dates: start: 20170829, end: 20170829
  17. INJECTAFER [Suspect]
     Active Substance: FERRIC CARBOXYMALTOSE
     Dosage: 750 MILLIGRAM IN 250 ML 0.9% NORMAL SALINE
     Route: 042
     Dates: start: 20171006, end: 20171006
  18. INJECTAFER [Suspect]
     Active Substance: FERRIC CARBOXYMALTOSE
     Dosage: 750 MILLIGRAM
     Route: 042
     Dates: start: 20171129, end: 20171129
  19. INJECTAFER [Suspect]
     Active Substance: FERRIC CARBOXYMALTOSE
     Dosage: 750 MILLIGRAM
     Route: 042
     Dates: start: 20171215, end: 20171215
  20. INJECTAFER [Suspect]
     Active Substance: FERRIC CARBOXYMALTOSE
     Dosage: 750 MILLIGRAM IN 250 ML 0.9% NORMAL SALINE
     Route: 042
     Dates: start: 20180125, end: 20180125
  21. INJECTAFER [Suspect]
     Active Substance: FERRIC CARBOXYMALTOSE
     Dosage: 750 MILLIGRAM IN 250 ML 0.9% NORMAL SALINE
     Route: 042
     Dates: start: 20180223, end: 20180223
  22. INJECTAFER [Suspect]
     Active Substance: FERRIC CARBOXYMALTOSE
     Dosage: 750 MILLIGRAM IN 250 ML 0.9% NORMAL SALINE
     Route: 042
     Dates: start: 20180406, end: 20180406
  23. INJECTAFER [Suspect]
     Active Substance: FERRIC CARBOXYMALTOSE
     Dosage: 750 MILLIGRAM IN 250 ML 0.9% NORMAL SALINE
     Route: 042
     Dates: start: 20180420, end: 20180420
  24. INJECTAFER [Suspect]
     Active Substance: FERRIC CARBOXYMALTOSE
     Dosage: 750 MILLIGRAM IN 250 ML 0.9% NORMAL SALINE
     Route: 042
     Dates: start: 20180518, end: 20180518
  25. INJECTAFER [Suspect]
     Active Substance: FERRIC CARBOXYMALTOSE
     Dosage: 750 MILLIGRAM IN 250 ML 0.9% NORMAL SALINE
     Route: 042
     Dates: start: 20180625, end: 20180625
  26. INJECTAFER [Suspect]
     Active Substance: FERRIC CARBOXYMALTOSE
     Dosage: 750 MILLIGRAM IN 250 ML 0.9% NORMAL SALINE
     Route: 042
     Dates: start: 20180731, end: 20180731
  27. INJECTAFER [Suspect]
     Active Substance: FERRIC CARBOXYMALTOSE
     Dosage: 750 MILLIGRAM IN 250 ML 0.9% NORMAL SALINE
     Route: 042
     Dates: start: 20180831, end: 20180831
  28. INJECTAFER [Suspect]
     Active Substance: FERRIC CARBOXYMALTOSE
     Dosage: 750 MILLIGRAM IN 250 ML 0.9% NORMAL SALINE
     Route: 042
     Dates: start: 20181005, end: 20181005
  29. INJECTAFER [Suspect]
     Active Substance: FERRIC CARBOXYMALTOSE
     Dosage: 750 MILLIGRAM IN 100 ML 0.9% NORMAL SALINE
     Route: 042
     Dates: start: 20181101, end: 20181101
  30. INJECTAFER [Suspect]
     Active Substance: FERRIC CARBOXYMALTOSE
     Dosage: 750 MILLIGRAM IN 250 ML 0.9% NORMAL SALINE
     Route: 042
     Dates: start: 20181207, end: 20181207
  31. INJECTAFER [Suspect]
     Active Substance: FERRIC CARBOXYMALTOSE
     Dosage: 750 MILLIGRAM IN 250 ML 0.9% NORMAL SALINE
     Route: 042
     Dates: start: 20181221, end: 20181221
  32. INJECTAFER [Suspect]
     Active Substance: FERRIC CARBOXYMALTOSE
     Dosage: 750 MILLIGRAM IN 250 ML 0.9% NORMAL SALINE
     Route: 042
     Dates: start: 20190107, end: 20190107
  33. INJECTAFER [Suspect]
     Active Substance: FERRIC CARBOXYMALTOSE
     Dosage: 750 MILLIGRAM IN 250 ML 0.9% NORMAL SALINE
     Route: 042
     Dates: start: 20190204, end: 20190204
  34. INJECTAFER [Suspect]
     Active Substance: FERRIC CARBOXYMALTOSE
     Dosage: 750 MILLIGRAM IN 250 ML 0.9% NORMAL SALINE
     Route: 042
     Dates: start: 20190218, end: 20190218
  35. INJECTAFER [Suspect]
     Active Substance: FERRIC CARBOXYMALTOSE
     Dosage: 750 MILLIGRAM IN 250 ML 0.9% NORMAL SALINE
     Route: 042
     Dates: start: 20190308, end: 20190308
  36. ACETYLCYSTEINE [Concomitant]
     Active Substance: ACETYLCYSTEINE
     Indication: Product used for unknown indication
     Dosage: DOSAGE BY MOUTH
     Route: 048
     Dates: end: 20160609
  37. VENTOLIN HFA [Concomitant]
     Active Substance: ALBUTEROL SULFATE
     Indication: Wheezing
     Dosage: INHALE 2 PUFFS IN LUNGS EVERY 6 HOURS AS NEEDED FOR WHEEZING
     Dates: start: 20150521
  38. VENTOLIN HFA [Concomitant]
     Active Substance: ALBUTEROL SULFATE
     Indication: Dyspnoea
  39. ZYRTEC [Concomitant]
     Active Substance: CETIRIZINE HYDROCHLORIDE
     Indication: Hypersensitivity
     Dosage: 10 MILLIGRAM, QD
     Route: 048
     Dates: start: 20110513
  40. FERRIC POLYSACCHARIDE COMPLEX [Concomitant]
     Active Substance: FERRIC POLYSACCHARIDE COMPLEX
     Indication: Iron deficiency anaemia
     Dosage: TAKE 1 CAP BY MOUTH DAILY
     Route: 048
     Dates: start: 20151015, end: 20170124
  41. VEETIDS [Concomitant]
     Active Substance: PENICILLIN V POTASSIUM
     Indication: Pyrexia
     Dosage: TAKE 1 TAB (250 MILLIGRAM TOTAL) BY MOUTH FOUR TIMES DAILY
     Route: 048
     Dates: start: 20151015, end: 20161014
  42. FLOVENT HFA [Concomitant]
     Active Substance: FLUTICASONE PROPIONATE
     Indication: Hypersensitivity
     Dosage: 2 PUFFS IN LUNGS, QD
     Dates: start: 20141230
  43. CALCIUM CARBONATE [Concomitant]
     Active Substance: CALCIUM CARBONATE
     Indication: Product used for unknown indication
     Dosage: UNK
     Route: 048
     Dates: start: 20141215
  44. MAGNESIUM [Concomitant]
     Active Substance: MAGNESIUM
     Indication: Product used for unknown indication
     Dosage: UNK
     Route: 048
     Dates: start: 20141215
  45. VITAMIN D2 [Concomitant]
     Active Substance: ERGOCALCIFEROL
     Indication: Product used for unknown indication
     Dosage: UNK
     Dates: start: 20141215
  46. FERGON [Concomitant]
     Active Substance: FERROUS GLUCONATE
     Indication: Iron deficiency anaemia
     Dosage: 240 MILLIGRAM, QD
     Route: 048
  47. MINERALS\VITAMINS [Concomitant]
     Active Substance: MINERALS\VITAMINS
     Indication: Product used for unknown indication
     Route: 048
  48. MONTELUKAST SODIUM [Concomitant]
     Active Substance: MONTELUKAST SODIUM
     Indication: Hypersensitivity
     Dosage: 10 MILLIGRAM
     Route: 048
  49. MONTELUKAST SODIUM [Concomitant]
     Active Substance: MONTELUKAST SODIUM
     Indication: Asthma
  50. BREO ELLIPTA [Concomitant]
     Active Substance: FLUTICASONE FUROATE\VILANTEROL TRIFENATATE
     Indication: Product used for unknown indication
  51. AMOXICILLIN [Concomitant]
     Active Substance: AMOXICILLIN
     Indication: Product used for unknown indication
     Dosage: 500 MILLIGRAM
     Dates: start: 20170629
  52. PREDNISONE [Concomitant]
     Active Substance: PREDNISONE
     Indication: Product used for unknown indication
     Dosage: 20 MILLIGRAM
     Dates: start: 20180727

REACTIONS (8)
  - Pain [Not Recovered/Not Resolved]
  - Asthenia [Not Recovered/Not Resolved]
  - Hypophosphataemia [Recovered/Resolved]
  - Dyspnoea [Recovered/Resolved]
  - Emotional distress [Not Recovered/Not Resolved]
  - Anhedonia [Not Recovered/Not Resolved]
  - Partner stress [Not Recovered/Not Resolved]
  - Product quality issue [Not Recovered/Not Resolved]

NARRATIVE: CASE EVENT DATE: 20161209
